FAERS Safety Report 5022705-4 (Version None)
Quarter: 2006Q2

REPORT INFORMATION
  Report Type: 
  Country: None (occurrence: None)
  Receive Date: 20060605
  Receipt Date: 20060519
  Transmission Date: 20061013
  Serious: Yes (Other)
  Sender: FDA-Public Use
  Company Number: AR200603003866

PATIENT
  Age: 14 Year
  Sex: Male
  Weight: 55.3 kg

DRUGS (2)
  1. STRATTERA [Suspect]
     Indication: ATTENTION DEFICIT/HYPERACTIVITY DISORDER
     Dosage: 60 MG, DAILY (`1/D), ORAL
     Route: 048
     Dates: start: 20040601, end: 20051201
  2. STRATTERA [Suspect]
     Indication: ATTENTION DEFICIT/HYPERACTIVITY DISORDER
     Dosage: 60 MG, DAILY (`1/D), ORAL
     Route: 048
     Dates: start: 20060301

REACTIONS (1)
  - VENTRICULAR EXTRASYSTOLES [None]
